FAERS Safety Report 22333136 (Version 1)
Quarter: 2023Q2

REPORT INFORMATION
  Report Type: Spontaneous
  Country: US (occurrence: US)
  Receive Date: 20230517
  Receipt Date: 20230517
  Transmission Date: 20230721
  Serious: No
  Sender: FDA-Public Use
  Company Number: US-PFIZER INC-202300189057

PATIENT
  Age: 58 Year
  Sex: Female
  Weight: 87.54 kg

DRUGS (2)
  1. LEVOXYL [Suspect]
     Active Substance: LEVOTHYROXINE SODIUM
     Indication: Hypothyroidism
     Dosage: 1 DF (100, 1 TABLET 5 DAYS A WEEK)
     Dates: end: 20230504
  2. LEVOXYL [Suspect]
     Active Substance: LEVOTHYROXINE SODIUM
     Dosage: 112, 2 DAYS A WEEK
     Dates: end: 20230504

REACTIONS (2)
  - Chest pain [Recovered/Resolved]
  - Paraesthesia [Unknown]
